FAERS Safety Report 5837091-7 (Version None)
Quarter: 2008Q3

REPORT INFORMATION
  Report Type: 
  Country: None (occurrence: None)
  Receive Date: 20080807
  Receipt Date: 20080229
  Transmission Date: 20090109
  Serious: No
  Sender: FDA-Public Use
  Company Number: A0712613A

PATIENT
  Age: 84 Year
  Sex: Female

DRUGS (3)
  1. TAGAMET HB 200 [Suspect]
     Dates: start: 20080203, end: 20080227
  2. BLOOD PRESSURE MEDICATION [Concomitant]
  3. CHOLESTEROL REDUCING AGENT [Concomitant]

REACTIONS (1)
  - DIARRHOEA [None]
